FAERS Safety Report 6245161-7 (Version None)
Quarter: 2009Q2

REPORT INFORMATION
  Report Type: 
  Country: None (occurrence: None)
  Receive Date: 20090625
  Receipt Date: 20090616
  Transmission Date: 20091009
  Serious: Yes (Life-Threatening)
  Sender: FDA-Public Use
  Company Number: DE-JNJFOC-20090600776

PATIENT
  Sex: Male

DRUGS (3)
  1. REOPRO [Suspect]
     Indication: ACUTE MYOCARDIAL INFARCTION
     Route: 016
  2. HEPARIN [Concomitant]
     Indication: DRUG USE FOR UNKNOWN INDICATION
  3. ACETYLSALICYLIC ACID [Concomitant]
     Indication: DRUG USE FOR UNKNOWN INDICATION

REACTIONS (4)
  - ARTERIAL HAEMORRHAGE [None]
  - CARDIAC TAMPONADE [None]
  - CORONARY ARTERY PERFORATION [None]
  - INCORRECT ROUTE OF DRUG ADMINISTRATION [None]
